FAERS Safety Report 19651736 (Version 1)
Quarter: 2021Q3

REPORT INFORMATION
  Report Type: Spontaneous
  Country: ES (occurrence: ES)
  Receive Date: 20210803
  Receipt Date: 20210803
  Transmission Date: 20211014
  Serious: Yes (Other)
  Sender: FDA-Public Use
  Company Number: ES-MYLANLABS-2021M1047295

PATIENT
  Age: 32 Year
  Sex: Male

DRUGS (8)
  1. PYRAZINAMIDE. [Concomitant]
     Active Substance: PYRAZINAMIDE
     Indication: TUBERCULOSIS
     Dosage: UNK
  2. PYRAZINAMIDE. [Concomitant]
     Active Substance: PYRAZINAMIDE
     Indication: OROPHARYNGEAL CANDIDIASIS
  3. RIFAMPIN. [Concomitant]
     Active Substance: RIFAMPIN
     Indication: TUBERCULOSIS
  4. FLUCONAZOLE. [Suspect]
     Active Substance: FLUCONAZOLE
     Indication: ANTIFUNGAL TREATMENT
     Dosage: 200 MILLIGRAM, QD
  5. FLUCONAZOLE. [Suspect]
     Active Substance: FLUCONAZOLE
     Indication: OROPHARYNGEAL CANDIDIASIS
     Dosage: 100 MILLIGRAM, QD
  6. RIFAMPIN. [Concomitant]
     Active Substance: RIFAMPIN
     Indication: OROPHARYNGEAL CANDIDIASIS
     Dosage: UNK
  7. ISONIAZID. [Concomitant]
     Active Substance: ISONIAZID
     Indication: OROPHARYNGEAL CANDIDIASIS
     Dosage: UNK
  8. ISONIAZID. [Concomitant]
     Active Substance: ISONIAZID
     Indication: TUBERCULOSIS

REACTIONS (4)
  - Drug ineffective [Unknown]
  - Cholestasis [Unknown]
  - Drug-induced liver injury [Unknown]
  - Pathogen resistance [Recovering/Resolving]
